FAERS Safety Report 13299764 (Version 2)
Quarter: 2017Q1

REPORT INFORMATION
  Report Type: Spontaneous
  Country: GR (occurrence: GR)
  Receive Date: 20170306
  Receipt Date: 20170321
  Transmission Date: 20170428
  Serious: Yes (Hospitalization)
  Sender: FDA-Public Use
  Company Number: GR-MERCK KGAA-1063887

PATIENT
  Age: 3 Year
  Sex: Male

DRUGS (1)
  1. NOVOTHYROX [Suspect]
     Active Substance: LEVOTHYROXINE SODIUM
     Indication: PRODUCT USED FOR UNKNOWN INDICATION
     Route: 048
     Dates: start: 20170224, end: 20170224

REACTIONS (1)
  - Accidental exposure to product by child [Unknown]

NARRATIVE: CASE EVENT DATE: 20170224
